FAERS Safety Report 16270473 (Version 5)
Quarter: 2020Q4

REPORT INFORMATION
  Report Type: Report from Study
  Country: None (occurrence: US)
  Receive Date: 20190503
  Receipt Date: 20201123
  Transmission Date: 20210113
  Serious: Yes (Death, Other)
  Sender: FDA-Public Use
  Company Number: US-INSMED, INC.-US-INS-19-01234

PATIENT
  Sex: Female

DRUGS (1)
  1. ARIKAYCE [Suspect]
     Active Substance: AMIKACIN
     Indication: PRODUCT USED FOR UNKNOWN INDICATION
     Route: 055
     Dates: start: 201901

REACTIONS (3)
  - Respiratory distress [Recovered/Resolved]
  - Haemoptysis [Recovered/Resolved]
  - Lung disorder [Fatal]

NARRATIVE: CASE EVENT DATE: 2019
